FAERS Safety Report 8970785 (Version 1)
Quarter: 2012Q4

REPORT INFORMATION
  Report Type: 
  Country: US (occurrence: US)
  Receive Date: 20121218
  Receipt Date: 20121218
  Transmission Date: 20130627
  Serious: No
  Sender: FDA-Public Use
  Company Number: US-BAYER-2012-131316

PATIENT
  Sex: Female

DRUGS (1)
  1. CLIMARA [Suspect]
     Indication: HOT FLASHES
     Dosage: 0.05 mg/24hr, OW
     Route: 062
     Dates: start: 2012

REACTIONS (2)
  - Drug level decreased [None]
  - Product adhesion issue [None]
